FAERS Safety Report 10176042 (Version 1)
Quarter: 2014Q2

REPORT INFORMATION
  Report Type: Spontaneous
  Country: US (occurrence: None)
  Receive Date: 20140515
  Receipt Date: 20140515
  Transmission Date: 20141212
  Serious: No
  Sender: FDA-Public Use
  Company Number: None

PATIENT
  Age: 80 Year
  Sex: Male

DRUGS (1)
  1. TOBRAMYCIN [Suspect]
     Indication: BRONCHIECTASIS
     Route: 055
     Dates: start: 20130327

REACTIONS (8)
  - Skin discolouration [None]
  - Cerebrovascular accident [None]
  - Raynaud^s phenomenon [None]
  - Nodule [None]
  - Nodule [None]
  - Deafness [None]
  - Amnesia [None]
  - Confusional state [None]
